FAERS Safety Report 9374354 (Version 2)
Quarter: 2013Q3

REPORT INFORMATION
  Report Type: Spontaneous
  Country: FR (occurrence: FR)
  Receive Date: 20130628
  Receipt Date: 20130904
  Transmission Date: 20140515
  Serious: Yes (Hospitalization, Congenital Anomaly)
  Sender: FDA-Public Use
  Company Number: PHHY2013FR066331

PATIENT
  Age: 1 Month
  Sex: Female

DRUGS (2)
  1. TASIGNA [Suspect]
     Indication: CHRONIC MYELOID LEUKAEMIA
     Route: 065
     Dates: end: 2011
  2. GLIVEC [Suspect]
     Dates: start: 2008, end: 2011

REACTIONS (3)
  - Acute myeloid leukaemia [Unknown]
  - Pulmonary valve stenosis congenital [Unknown]
  - Exposure via father [Unknown]
